FAERS Safety Report 5458048-4 (Version None)
Quarter: 2007Q3

REPORT INFORMATION
  Report Type: 
  Country: None (occurrence: None)
  Receive Date: 20070919
  Receipt Date: 20070912
  Transmission Date: 20080115
  Serious: Yes (Other)
  Sender: FDA-Public Use
  Company Number: PHBS2007BR15059

PATIENT
  Age: 74 Year
  Sex: Female
  Weight: 92 kg

DRUGS (10)
  1. DIOVAN [Suspect]
     Indication: HYPERTENSION
     Dosage: 80 MG, QD
     Route: 048
     Dates: start: 20030101
  2. EUTHYROX [Concomitant]
     Indication: THYROID DISORDER
     Dosage: UNK, QD
     Route: 048
  3. FLUOXETINE [Concomitant]
     Indication: DEPRESSION
     Dosage: 20 MG, QD
     Route: 048
  4. CALCIUM ACETATE [Concomitant]
     Indication: RENAL IMPAIRMENT
     Dosage: 500 MG, TID
     Route: 048
  5. ALLOPURINOL [Concomitant]
     Indication: BLOOD URIC ACID INCREASED
     Dosage: UNK, QD
     Route: 048
  6. DILTIAZEM HYDROCHLORIDE [Concomitant]
     Dosage: UNK, TID
     Route: 048
  7. ROCALTROL [Concomitant]
     Indication: RENAL IMPAIRMENT
     Dosage: 3 TABLET/DAY
     Route: 048
  8. MAREVAN [Concomitant]
     Indication: PERIPHERAL CIRCULATORY FAILURE
     Route: 048
  9. FRONTAL [Concomitant]
     Indication: NERVOUSNESS
     Dosage: UNK, PRN
     Route: 048
  10. DIOVAN HCT [Suspect]
     Indication: HYPERTENSION
     Dosage: UNK, UNK
     Route: 048

REACTIONS (3)
  - FALL [None]
  - HYPOTENSION [None]
  - SURGERY [None]
